FAERS Safety Report 7012991-3 (Version None)
Quarter: 2010Q3

REPORT INFORMATION
  Report Type: 
  Country: None (occurrence: None)
  Receive Date: 20100924
  Receipt Date: 20100915
  Transmission Date: 20110219
  Serious: Yes (Other)
  Sender: FDA-Public Use
  Company Number: BR-ABBOTT-10P-020-0671150-00

PATIENT
  Age: 13 Year
  Sex: Male

DRUGS (1)
  1. VALPAKINE [Suspect]
     Indication: PRODUCT USED FOR UNKNOWN INDICATION
     Route: 065

REACTIONS (4)
  - BALANCE DISORDER [None]
  - INITIAL INSOMNIA [None]
  - SYNCOPE [None]
  - TREMOR [None]
